FAERS Safety Report 14267750 (Version 2)
Quarter: 2017Q4

REPORT INFORMATION
  Report Type: Spontaneous
  Country: AR (occurrence: AR)
  Receive Date: 20171211
  Receipt Date: 20171225
  Transmission Date: 20180321
  Serious: Yes (Other)
  Sender: FDA-Public Use
  Company Number: PHHY2017AR150977

PATIENT
  Age: 14 Year
  Sex: Male

DRUGS (9)
  1. TRAMETINIB [Suspect]
     Active Substance: TRAMETINIB
     Dosage: 1 MG, QD
     Route: 065
     Dates: start: 20171001
  2. TRAMETINIB [Suspect]
     Active Substance: TRAMETINIB
     Dosage: 0.5 MG, QOD
     Route: 065
     Dates: start: 20171029
  3. LOPERAMIDE [Concomitant]
     Active Substance: LOPERAMIDE
     Indication: PRODUCT USED FOR UNKNOWN INDICATION
     Route: 065
  4. TRAMETINIB [Suspect]
     Active Substance: TRAMETINIB
     Indication: NEUROFIBROMA
     Dosage: 1 MG, QD
     Route: 065
     Dates: start: 20170901, end: 20170924
  5. TRAMETINIB [Suspect]
     Active Substance: TRAMETINIB
     Dosage: 1 DF, QOD
     Route: 065
  6. TRAMETINIB [Suspect]
     Active Substance: TRAMETINIB
     Dosage: 2 DF, QOD
     Route: 065
  7. TRAMETINIB [Suspect]
     Active Substance: TRAMETINIB
     Dosage: 1 DF, QD
     Route: 065
  8. TRAMETINIB [Suspect]
     Active Substance: TRAMETINIB
     Dosage: 1 MG, QOD
     Route: 065
  9. TRAMETINIB [Suspect]
     Active Substance: TRAMETINIB
     Dosage: 2 DF, QD
     Route: 065

REACTIONS (9)
  - Decreased appetite [Recovered/Resolved]
  - Abdominal discomfort [Recovered/Resolved]
  - Dermatitis acneiform [Recovered/Resolved]
  - Abdominal pain [Recovered/Resolved]
  - Arrhythmia [Recovered/Resolved]
  - Pyrexia [Unknown]
  - Extrasystoles [Recovered/Resolved]
  - Off label use [Unknown]
  - Diarrhoea [Recovered/Resolved]

NARRATIVE: CASE EVENT DATE: 20170922
